FAERS Safety Report 10964174 (Version 2)
Quarter: 2015Q2

REPORT INFORMATION
  Report Type: Report from Study
  Country: US (occurrence: US)
  Receive Date: 20150329
  Receipt Date: 20150416
  Transmission Date: 20150821
  Serious: Yes (Other)
  Sender: FDA-Public Use
  Company Number: PHEH2015US005802

PATIENT
  Age: 50 Year
  Sex: Female

DRUGS (1)
  1. NEORAL [Suspect]
     Active Substance: CYCLOSPORINE
     Indication: RENAL TRANSPLANT
     Dosage: 200 MG, QD
     Route: 048

REACTIONS (7)
  - Contusion [Unknown]
  - Arthralgia [Unknown]
  - Renal impairment [Unknown]
  - Renal pain [Unknown]
  - Road traffic accident [Unknown]
  - Pain [Unknown]
  - Weight increased [Unknown]

NARRATIVE: CASE EVENT DATE: 20150120
